FAERS Safety Report 10683620 (Version 2)
Quarter: 2015Q1

REPORT INFORMATION
  Report Type: Spontaneous
  Country: US (occurrence: US)
  Receive Date: 20141230
  Receipt Date: 20150109
  Transmission Date: 20150720
  Serious: No
  Sender: FDA-Public Use
  Company Number: US-009507513-1412USA007251

PATIENT
  Sex: Female
  Weight: 58.5 kg

DRUGS (3)
  1. LIOTHYRONINE SODIUM. [Concomitant]
     Active Substance: LIOTHYRONINE SODIUM
     Indication: THYROID DISORDER
     Dosage: UNK, UNKNOWN
  2. CLARITIN-D 12 HOUR [Suspect]
     Active Substance: LORATADINE\PSEUDOEPHEDRINE SULFATE
     Indication: HYPERSENSITIVITY
     Dosage: 10 MG, HS
     Route: 048
  3. L-THYROXIN [Concomitant]
     Active Substance: LEVOTHYROXINE SODIUM
     Indication: THYROID DISORDER
     Dosage: UNK, UNKNOWN

REACTIONS (5)
  - Insomnia [Unknown]
  - Headache [Unknown]
  - Malaise [Recovered/Resolved]
  - Palpitations [Recovered/Resolved]
  - Nausea [Unknown]
